FAERS Safety Report 9622177 (Version 1)
Quarter: 2013Q4

REPORT INFORMATION
  Report Type: Spontaneous
  Country: US (occurrence: None)
  Receive Date: 20131010
  Receipt Date: 20131010
  Transmission Date: 20140711
  Serious: Yes (Hospitalization)
  Sender: FDA-Public Use
  Company Number: 001605246A

PATIENT
  Age: 62 Year
  Sex: Female

DRUGS (4)
  1. MB* ANTIOXIDANT DAY CREME SPF 20 [Suspect]
     Dosage: ONCE DAILY DERMAL
     Dates: start: 20130901, end: 20130903
  2. MEANINGFUL BEAUTY SKIN BRIGHTENING DECOLLETE NECK TREATMENT SPF.15 [Suspect]
     Dosage: ONCE DAILY DERMAL
     Dates: start: 20130901, end: 20130903
  3. SYNTHROID [Concomitant]
  4. PREMARIN [Concomitant]

REACTIONS (2)
  - Urticaria [None]
  - Throat tightness [None]
